FAERS Safety Report 4821492-X (Version None)
Quarter: 2005Q4

REPORT INFORMATION
  Report Type: 
  Country: None (occurrence: None)
  Receive Date: 20051107
  Receipt Date: 20051026
  Transmission Date: 20060501
  Serious: Yes (Hospitalization)
  Sender: FDA-Public Use
  Company Number: US-GLAXOSMITHKLINE-A0580709A

PATIENT
  Age: 36 Year
  Sex: Female

DRUGS (2)
  1. PAXIL [Suspect]
     Indication: POSTPARTUM DEPRESSION
     Dosage: 20MG PER DAY
     Route: 048
     Dates: start: 19990901
  2. XANAX [Concomitant]
     Indication: PANIC ATTACK

REACTIONS (6)
  - AGITATION [None]
  - ANXIETY [None]
  - DEPRESSION [None]
  - DRUG WITHDRAWAL SYNDROME [None]
  - RESTLESSNESS [None]
  - SUICIDAL IDEATION [None]
